FAERS Safety Report 21685262 (Version 1)
Quarter: 2022Q4

REPORT INFORMATION
  Report Type: Spontaneous
  Country: US (occurrence: US)
  Receive Date: 20221206
  Receipt Date: 20221206
  Transmission Date: 20230112
  Serious: Yes (Hospitalization, Other)
  Sender: FDA-Public Use
  Company Number: US-WOCKHARDT BIO AG-2022WBA000185

PATIENT
  Age: 32 Year
  Sex: Male

DRUGS (4)
  1. AMOXICILLIN\CLAVULANATE POTASSIUM [Suspect]
     Active Substance: AMOXICILLIN\CLAVULANATE POTASSIUM
     Indication: Tooth abscess
     Dosage: UNK
     Route: 048
  2. VANCOMYCIN [Concomitant]
     Active Substance: VANCOMYCIN
     Indication: Endocarditis
     Dosage: UNK
     Route: 042
  3. CEFTRIAXONE [Concomitant]
     Active Substance: CEFTRIAXONE
     Indication: Endocarditis
     Route: 042
  4. METRONIDAZOLE [Concomitant]
     Active Substance: METRONIDAZOLE
     Indication: Endocarditis
     Route: 042

REACTIONS (5)
  - Drug reaction with eosinophilia and systemic symptoms [Recovered/Resolved]
  - Hepatosplenomegaly [Unknown]
  - Acute kidney injury [Recovering/Resolving]
  - Liver injury [Recovering/Resolving]
  - Product use in unapproved indication [Unknown]
